FAERS Safety Report 5661061-5 (Version None)
Quarter: 2008Q1

REPORT INFORMATION
  Report Type: 
  Country: None (occurrence: None)
  Receive Date: 20080311
  Receipt Date: 20080220
  Transmission Date: 20080703
  Serious: Yes (Other)
  Sender: FDA-Public Use
  Company Number: FR-BOEHRINGER INGELHEIM GMBH, GERMANY-2008-FF-00150FF

PATIENT
  Age: 45 Year
  Sex: Male

DRUGS (3)
  1. SPIRIVA [Suspect]
     Indication: CHRONIC OBSTRUCTIVE PULMONARY DISEASE
     Route: 055
     Dates: start: 20060909
  2. EZETROL [Concomitant]
     Route: 048
  3. SERETIDE [Concomitant]
     Route: 055

REACTIONS (2)
  - ADENOCARCINOMA [None]
  - DYSURIA [None]
